FAERS Safety Report 8621826-4 (Version None)
Quarter: 2012Q3

REPORT INFORMATION
  Report Type: 
  Country: None (occurrence: None)
  Receive Date: 20120821
  Receipt Date: 20120821
  Transmission Date: 20120928
  Serious: Yes (Hospitalization)
  Sender: FDA-Public Use
  Company Number: None

PATIENT
  Sex: Male
  Weight: 90.7194 kg

DRUGS (1)
  1. CIPROFLOXACIN HCL [Suspect]
     Indication: DIARRHOEA
     Dosage: ONE PILL
     Dates: start: 20120616, end: 20120616

REACTIONS (4)
  - ANXIETY [None]
  - PANIC ATTACK [None]
  - DIZZINESS [None]
  - PHOBIA [None]
